FAERS Safety Report 9144216 (Version 3)
Quarter: 2013Q2

REPORT INFORMATION
  Report Type: Spontaneous
  Country: JP (occurrence: JP)
  Receive Date: 20130306
  Receipt Date: 20130422
  Transmission Date: 20140414
  Serious: Yes (Hospitalization)
  Sender: FDA-Public Use
  Company Number: JP-BRISTOL-MYERS SQUIBB COMPANY-17419854

PATIENT
  Age: 77 Year
  Sex: Female

DRUGS (3)
  1. BARACLUDE TABS 0.5 MG [Suspect]
     Indication: CHRONIC HEPATITIS B
     Route: 048
     Dates: start: 20130119
  2. SOL MELCORT [Suspect]
     Indication: HEPATITIS B
     Dosage: 18JAN-22JAN13;1000MG?23JAN-25JAN13;500MG?26JAN-28JAN13;250MG
     Route: 042
     Dates: start: 20130118, end: 20130128
  3. PREDONINE [Suspect]
     Indication: HEPATITIS B
     Dosage: 29JAN-31JAN13;20MG?13-26FEB13;9MG?27-05MAR13;8.7MG?06-11MAR13;6MG?12-19MAR13;5MG, 20MAR13;5MG QD
     Route: 048
     Dates: start: 20130129

REACTIONS (3)
  - Muscular weakness [Recovering/Resolving]
  - Pyelonephritis [Recovered/Resolved]
  - Sepsis [Recovering/Resolving]
